FAERS Safety Report 16600133 (Version 1)
Quarter: 2019Q3

REPORT INFORMATION
  Report Type: Spontaneous
  Country: FR (occurrence: FR)
  Receive Date: 20190720
  Receipt Date: 20190720
  Transmission Date: 20191004
  Serious: Yes (Other)
  Sender: FDA-Public Use
  Company Number: FR-AUROBINDO-AUR-APL-2019-041780

PATIENT

DRUGS (3)
  1. ZOLPIDEM [Suspect]
     Active Substance: ZOLPIDEM TARTRATE
     Indication: TOXICITY TO VARIOUS AGENTS
     Dosage: 20 DOSAGE FORM 1 TOTAL
     Route: 048
     Dates: start: 20170402, end: 20170402
  2. MIRTAZAPINE. [Suspect]
     Active Substance: MIRTAZAPINE
     Indication: TOXICITY TO VARIOUS AGENTS
     Dosage: 10 DOSAGE FORM 1 TOTAL
     Route: 048
     Dates: start: 20170402, end: 20170402
  3. PRAVASTATIN. [Suspect]
     Active Substance: PRAVASTATIN
     Indication: TOXICITY TO VARIOUS AGENTS
     Dosage: 11 DOSAGE FORM 1 TOTAL
     Route: 048
     Dates: start: 20170402, end: 20170402

REACTIONS (3)
  - Somnolence [Recovered/Resolved]
  - Toxicity to various agents [Recovered/Resolved]
  - Coma scale abnormal [Recovered/Resolved]

NARRATIVE: CASE EVENT DATE: 20170402
